FAERS Safety Report 18322714 (Version 1)
Quarter: 2020Q3

REPORT INFORMATION
  Report Type: Spontaneous
  Country: US (occurrence: US)
  Receive Date: 20200928
  Receipt Date: 20200928
  Transmission Date: 20201103
  Serious: No
  Sender: FDA-Public Use
  Company Number: None

PATIENT
  Age: 66 Year
  Sex: Female

DRUGS (1)
  1. HUMIRA [Suspect]
     Active Substance: ADALIMUMAB
     Indication: PSORIASIS
     Dosage: FREQUENCY: DAY 1, 40MG (1 PEN) DAY 8 THEN 40MG EVERY OTHER WEEK AS DIRECTED.
     Route: 058
     Dates: start: 202007

REACTIONS (2)
  - Fungal infection [None]
  - Therapy interrupted [None]
